FAERS Safety Report 24985307 (Version 2)
Quarter: 2025Q1

REPORT INFORMATION
  Report Type: Report from Study
  Country: US (occurrence: US)
  Receive Date: 20250219
  Receipt Date: 20250321
  Transmission Date: 20250409
  Serious: Yes (Other)
  Sender: BAYER HEALTHCARE PHARMACEUTICALS INC.
  Company Number: US-BAYER-2024A153987

PATIENT
  Age: 47 Year
  Sex: Female
  Weight: 74.83 kg

DRUGS (7)
  1. ADEMPAS [Suspect]
     Active Substance: RIOCIGUAT
     Indication: Pulmonary arterial hypertension
  2. ADEMPAS [Suspect]
     Active Substance: RIOCIGUAT
     Indication: Pulmonary arterial hypertension
     Dosage: 2 MG, TID
     Route: 048
     Dates: start: 202408
  3. TYVASO DPI [Suspect]
     Active Substance: TREPROSTINIL
     Indication: Pulmonary arterial hypertension
  4. NUCALA [Concomitant]
     Active Substance: MEPOLIZUMAB
  5. RUCONEST [Concomitant]
     Active Substance: CONESTAT ALFA
  6. TAKHZYRO [Concomitant]
     Active Substance: LANADELUMAB-FLYO
  7. TREPROSTINIL [Concomitant]
     Active Substance: TREPROSTINIL
     Indication: Pulmonary arterial hypertension
     Dosage: 32 ?G, QID

REACTIONS (13)
  - General physical health deterioration [None]
  - Syncope [None]
  - Fatigue [None]
  - Blood pressure decreased [None]
  - Dyspnoea [Not Recovered/Not Resolved]
  - Dizziness [Not Recovered/Not Resolved]
  - Chest discomfort [None]
  - Hypotension [Not Recovered/Not Resolved]
  - Dyspnoea exertional [None]
  - Decreased activity [Not Recovered/Not Resolved]
  - Mood altered [None]
  - Weight increased [None]
  - Presyncope [None]

NARRATIVE: CASE EVENT DATE: 20240101
